FAERS Safety Report 4738022-3 (Version None)
Quarter: 2005Q3

REPORT INFORMATION
  Report Type: 
  Country: None (occurrence: None)
  Receive Date: 20050805
  Receipt Date: 20050722
  Transmission Date: 20060218
  Serious: Yes (Other)
  Sender: FDA-Public Use
  Company Number: CIP05001753

PATIENT
  Age: 66 Year
  Sex: Female

DRUGS (5)
  1. RISEDRONATE (RISEDRONATE SODIUM) TABLET [Suspect]
     Indication: OSTEOPOROSIS
     Dosage: ORAL
     Route: 048
  2. PRAVASTATIN [Suspect]
  3. NEUROTROPIN (ORGAIN LYSATE, STANDARDIZED) [Suspect]
  4. MENATETRENONE (MENATETRENONE) [Suspect]
  5. SAIREI-TO(HERBAL EXTRACT NOS) [Suspect]

REACTIONS (6)
  - COUGH [None]
  - CRYPTOGENIC ORGANIZING PNEUMONIA [None]
  - PLEURAL EFFUSION [None]
  - PNEUMONITIS [None]
  - PULMONARY FIBROSIS [None]
  - PYREXIA [None]
